FAERS Safety Report 24612998 (Version 1)
Quarter: 2024Q4

REPORT INFORMATION
  Report Type: Spontaneous
  Country: JP (occurrence: JP)
  Receive Date: 20241113
  Receipt Date: 20241113
  Transmission Date: 20250115
  Serious: Yes (Hospitalization, Other)
  Sender: PFIZER
  Company Number: JP-ONO-2024JP023052

PATIENT

DRUGS (4)
  1. BRAFTOVI [Suspect]
     Active Substance: ENCORAFENIB
     Indication: Thyroid cancer
     Dosage: UNK
     Route: 048
     Dates: start: 202410, end: 2024
  2. BRAFTOVI [Suspect]
     Active Substance: ENCORAFENIB
     Dosage: HALF DOSES
     Route: 048
     Dates: start: 2024
  3. MEKTOVI [Suspect]
     Active Substance: BINIMETINIB
     Indication: Thyroid cancer
     Dosage: UNK
     Route: 048
     Dates: start: 202410, end: 2024
  4. MEKTOVI [Suspect]
     Active Substance: BINIMETINIB
     Dosage: HALF DOSES
     Route: 048
     Dates: start: 2024

REACTIONS (2)
  - Serous retinopathy [Recovered/Resolved]
  - Off label use [Unknown]

NARRATIVE: CASE EVENT DATE: 20240101
